FAERS Safety Report 9365344 (Version 1)
Quarter: 2013Q2

REPORT INFORMATION
  Report Type: Spontaneous
  Country: FR (occurrence: FR)
  Receive Date: 20130625
  Receipt Date: 20130625
  Transmission Date: 20140414
  Serious: Yes (Life-Threatening)
  Sender: FDA-Public Use
  Company Number: FR-ROCHE-1239476

PATIENT
  Age: 51 Year
  Sex: Male

DRUGS (8)
  1. TAMIFLU [Suspect]
     Indication: PRODUCT USED FOR UNKNOWN INDICATION
     Route: 065
     Dates: start: 20130222, end: 20130226
  2. TAMIFLU [Suspect]
     Route: 065
     Dates: start: 20130314, end: 20130317
  3. ADVAGRAF [Concomitant]
  4. CORTANCYL [Concomitant]
  5. BACTRIM [Concomitant]
     Route: 065
  6. ASPEGIC [Concomitant]
  7. ROVALCYTE [Concomitant]
     Route: 065
  8. PARIET [Concomitant]

REACTIONS (1)
  - Sinoatrial block [Recovered/Resolved]
